FAERS Safety Report 9293294 (Version 2)
Quarter: 2013Q3

REPORT INFORMATION
  Report Type: Spontaneous
  Country: US (occurrence: US)
  Receive Date: 20130517
  Receipt Date: 20130701
  Transmission Date: 20140515
  Serious: Yes (Hospitalization)
  Sender: FDA-Public Use
  Company Number: US-AMGEN-USASP2013034016

PATIENT
  Sex: 0

DRUGS (1)
  1. ENBREL [Suspect]
     Dosage: 50 MG, QWK
     Route: 015
     Dates: end: 2010

REACTIONS (1)
  - Premature baby [Recovered/Resolved]
